FAERS Safety Report 4356843-6 (Version None)
Quarter: 2004Q2

REPORT INFORMATION
  Report Type: 
  Country: None (occurrence: None)
  Receive Date: 20040507
  Receipt Date: 20040415
  Transmission Date: 20050107
  Serious: Yes (Hospitalization, Other)
  Sender: FDA-Public Use
  Company Number: DE_040413407

PATIENT
  Sex: Male

DRUGS (1)
  1. HUMALOG [Suspect]
     Indication: DIABETES MELLITUS
     Dosage: 1200 IU DAY

REACTIONS (4)
  - HYPOGLYCAEMIA [None]
  - MEDICATION ERROR [None]
  - OVERDOSE [None]
  - SUICIDE ATTEMPT [None]
